FAERS Safety Report 4984942-4 (Version None)
Quarter: 2006Q1

REPORT INFORMATION
  Report Type: 
  Country: None (occurrence: None)
  Receive Date: 20060309
  Receipt Date: 20050609
  Transmission Date: 20060701
  Serious: Yes (Other)
  Sender: FDA-Public Use
  Company Number: 338881

PATIENT
  Sex: Female

DRUGS (3)
  1. ACCUTANE [Suspect]
     Indication: ACNE
     Dosage: ORAL
     Route: 048
     Dates: start: 19820615, end: 19860615
  2. CREAM NOS (GENERIC COMPONENT (S) [Concomitant]
  3. ACNE INJECTION NOS (ACNE MEDICATION NOS) [Concomitant]

REACTIONS (3)
  - NORMAL NEWBORN [None]
  - PREGNANCY OF PARTNER [None]
  - TRANSMISSION OF DRUG VIA SEMEN [None]
